FAERS Safety Report 10416591 (Version 1)
Quarter: 2014Q3

REPORT INFORMATION
  Report Type: Spontaneous
  Country: VE (occurrence: VE)
  Receive Date: 20140828
  Receipt Date: 20140828
  Transmission Date: 20150326
  Serious: Yes (Hospitalization)
  Sender: FDA-Public Use
  Company Number: PHHY2014VE108055

PATIENT
  Age: 63 Year
  Sex: Female

DRUGS (10)
  1. HYZAAR [Suspect]
     Active Substance: HYDROCHLOROTHIAZIDE\LOSARTAN POTASSIUM
     Indication: HYPERTENSION
     Dosage: 160 MG, UNK
     Dates: start: 201402, end: 20140825
  2. DIOVAN HCT [Suspect]
     Active Substance: HYDROCHLOROTHIAZIDE\VALSARTAN
     Indication: HYPERTENSION
     Dosage: 1 DF, DAILY
     Route: 048
     Dates: start: 2012
  3. FARMA D [Concomitant]
     Indication: VITAMIN E DEFICIENCY
     Dosage: UNK UKN, UNK
     Dates: start: 2012, end: 201408
  4. FORADIL [Suspect]
     Active Substance: FORMOTEROL FUMARATE
     Indication: BRONCHIAL OEDEMA
     Dosage: UNK UKN, UNK
     Route: 055
     Dates: start: 2011
  5. MIFLONIDE [Suspect]
     Active Substance: BUDESONIDE
     Indication: OFF LABEL USE
     Dosage: UNK (200 MG), UNK
     Route: 055
  6. AIRON [Concomitant]
     Indication: ANTIALLERGIC THERAPY
     Dosage: UNK UKN, UNK
     Dates: start: 2011, end: 20140825
  7. CALCIBON D [Concomitant]
     Indication: ARTHRITIS
     Dosage: UNK UKN, UNK
     Dates: start: 201401, end: 20140824
  8. FORADIL [Suspect]
     Active Substance: FORMOTEROL FUMARATE
     Indication: OFF LABEL USE
  9. BERODUAL [Concomitant]
     Active Substance: FENOTEROL HYDROBROMIDE\IPRATROPIUM BROMIDE
     Indication: INHALATION THERAPY
     Dosage: 3 DF, UNK
     Route: 055
  10. MIFLONIDE [Suspect]
     Active Substance: BUDESONIDE
     Indication: BRONCHIAL OEDEMA
     Dosage: UNK (400 MG), UNK
     Route: 055

REACTIONS (5)
  - Drug ineffective [Not Recovered/Not Resolved]
  - Asthmatic crisis [Not Recovered/Not Resolved]
  - Dyspnoea [Not Recovered/Not Resolved]
  - Back pain [Not Recovered/Not Resolved]
  - Malaise [Not Recovered/Not Resolved]

NARRATIVE: CASE EVENT DATE: 20140825
